FAERS Safety Report 6652989-8 (Version None)
Quarter: 2010Q1

REPORT INFORMATION
  Report Type: 
  Country: None (occurrence: None)
  Receive Date: 20100326
  Receipt Date: 20100315
  Transmission Date: 20100710
  Serious: Yes (Other)
  Sender: FDA-Public Use
  Company Number: PHHY2009CA14632

PATIENT
  Sex: Female

DRUGS (2)
  1. SANDOSTATIN LAR [Suspect]
     Indication: CARCINOID SYNDROME
     Dosage: 30 MG, EVERY 4 WEEKS
     Route: 030
     Dates: start: 20080221
  2. SANDOSTATIN LAR [Suspect]
     Dosage: 40 MG EVERY 4 WEEKS

REACTIONS (3)
  - DIARRHOEA [None]
  - GASTROINTESTINAL SURGERY [None]
  - POST PROCEDURAL DIARRHOEA [None]
